FAERS Safety Report 5790167-5 (Version None)
Quarter: 2008Q2

REPORT INFORMATION
  Report Type: 
  Country: None (occurrence: None)
  Receive Date: 20080626
  Receipt Date: 20080512
  Transmission Date: 20081010
  Serious: No
  Sender: FDA-Public Use
  Company Number: A0702945A

PATIENT

DRUGS (1)
  1. ALLI [Suspect]
     Indication: DRUG USE FOR UNKNOWN INDICATION

REACTIONS (11)
  - DEPRESSED MOOD [None]
  - DRUG INEFFECTIVE [None]
  - DYSPNOEA [None]
  - EATING DISORDER [None]
  - FOOD CRAVING [None]
  - HANGOVER [None]
  - HUNGER [None]
  - INCREASED APPETITE [None]
  - MALAISE [None]
  - NAUSEA [None]
  - WEIGHT INCREASED [None]
